FAERS Safety Report 5728313-1 (Version None)
Quarter: 2008Q2

REPORT INFORMATION
  Report Type: 
  Country: None (occurrence: None)
  Receive Date: 20080502
  Receipt Date: 20080502
  Transmission Date: 20081010
  Serious: Yes (Life-Threatening, Other)
  Sender: FDA-Public Use
  Company Number: None

PATIENT
  Age: 30 Year
  Sex: Male
  Weight: 95.2554 kg

DRUGS (1)
  1. ANTABUSE [Suspect]
     Dosage: 250MG 3 TIMES WEEKLY (DURATION: OVER 4 YEARS)
     Dates: start: 20031018, end: 20071231

REACTIONS (1)
  - ADVERSE EVENT [None]
